FAERS Safety Report 7775718-3 (Version None)
Quarter: 2011Q3

REPORT INFORMATION
  Report Type: 
  Country: None (occurrence: None)
  Receive Date: 20110923
  Receipt Date: 20110914
  Transmission Date: 20111222
  Serious: Yes (Hospitalization)
  Sender: FDA-Public Use
  Company Number: FR-GLAXOSMITHKLINE-B0747204A

PATIENT
  Sex: Male

DRUGS (11)
  1. AMOXICILLIN [Suspect]
     Indication: STOMATITIS
     Dosage: 1G THREE TIMES PER DAY
     Route: 048
     Dates: start: 20110819, end: 20110822
  2. TRAMADOL HCL [Suspect]
     Indication: PAIN
     Route: 048
     Dates: start: 20110813, end: 20110818
  3. PREDNISONE [Concomitant]
     Dosage: 10MG PER DAY
  4. VALACYCLOVIR HYDROCHLORIDE [Suspect]
     Indication: ORAL HERPES
     Dosage: 500MG THREE TIMES PER DAY
     Route: 048
     Dates: start: 20110818, end: 20110819
  5. ESIDRIX [Suspect]
     Indication: HYPERTENSION
     Dosage: 25MG PER DAY
     Route: 048
     Dates: end: 20110821
  6. NEBIVOLOL HCL [Concomitant]
     Dosage: 5MG PER DAY
  7. ACETAMINOPHEN [Suspect]
     Indication: PAIN
     Dosage: 1G THREE TIMES PER DAY
     Route: 048
     Dates: start: 20110813, end: 20110823
  8. MYFORTIC [Concomitant]
     Dosage: 720MG TWICE PER DAY
  9. PRIMPERAN TAB [Suspect]
     Indication: NAUSEA
     Dosage: 10MG THREE TIMES PER DAY
     Route: 048
     Dates: start: 20110813, end: 20110814
  10. NEORAL [Concomitant]
     Dosage: 275MG PER DAY
     Route: 065
  11. MORPHINE [Concomitant]
     Route: 002

REACTIONS (1)
  - AGRANULOCYTOSIS [None]
